FAERS Safety Report 4689747-X (Version None)
Quarter: 2005Q2

REPORT INFORMATION
  Report Type: 
  Country: None (occurrence: None)
  Receive Date: 20050614
  Receipt Date: 20050613
  Transmission Date: 20051028
  Serious: Yes (Hospitalization)
  Sender: FDA-Public Use
  Company Number: PHBS2005ZA08323

PATIENT
  Age: 13 Year
  Sex: Female

DRUGS (1)
  1. RITALIN [Suspect]
     Indication: ATTENTION DEFICIT/HYPERACTIVITY DISORDER
     Route: 065

REACTIONS (6)
  - HEPATIC FUNCTION ABNORMAL [None]
  - PYREXIA [None]
  - SPLEEN DISORDER [None]
  - SPLENIC INFECTION [None]
  - SPLENOMEGALY [None]
  - THROMBOCYTOPENIA [None]
